FAERS Safety Report 12245850 (Version 1)
Quarter: 2016Q2

REPORT INFORMATION
  Report Type: Spontaneous
  Country: US (occurrence: None)
  Receive Date: 20160406
  Receipt Date: 20160406
  Transmission Date: 20160815
  Serious: No
  Sender: FDA-Public Use
  Company Number: None

PATIENT
  Age: 80 Year
  Sex: Male
  Weight: 83.92 kg

DRUGS (1)
  1. TAMSULOSIN, 0.4MG [Suspect]
     Active Substance: TAMSULOSIN
     Route: 048

REACTIONS (2)
  - Confusional state [None]
  - Abnormal behaviour [None]

NARRATIVE: CASE EVENT DATE: 20160401
